FAERS Safety Report 5096646-0 (Version None)
Quarter: 2006Q3

REPORT INFORMATION
  Report Type: 
  Country: None (occurrence: None)
  Receive Date: 20060830
  Receipt Date: 20060818
  Transmission Date: 20061208
  Serious: Yes (Death, Life-Threatening, Hospitalization)
  Sender: FDA-Public Use
  Company Number: HQWYE712318AUG06

PATIENT
  Age: 92 Year
  Sex: Male

DRUGS (7)
  1. CORDARONE [Suspect]
     Dosage: ORAL
     Route: 048
  2. DEPAKENE [Suspect]
     Route: 065
  3. POTASSIUM CHLORIDE [Suspect]
     Route: 065
  4. LASIX [Suspect]
     Indication: ESSENTIAL HYPERTENSION
     Dosage: 500 MG 2X PER 1 DAY ORAL
     Route: 048
     Dates: start: 20060428, end: 20060502
  5. ZOLPIDEM TARTRATE [Suspect]
     Dosage: 10 MG TABLET, ORAL
     Route: 048
  6. ANTIBIOTICS (ANTIBIOTICS) [Concomitant]
  7. ACETAMINOPHEN [Concomitant]

REACTIONS (8)
  - COMA [None]
  - DEHYDRATION [None]
  - DIABETES MELLITUS [None]
  - DIARRHOEA [None]
  - INFECTION [None]
  - INTERNATIONAL NORMALISED RATIO INCREASED [None]
  - RENAL FAILURE [None]
  - URINARY TRACT INFECTION [None]
